FAERS Safety Report 22317059 (Version 2)
Quarter: 2023Q4

REPORT INFORMATION
  Report Type: Other
  Country: IN (occurrence: None)
  Receive Date: 20230514
  Receipt Date: 20231031
  Transmission Date: 20240109
  Serious: Yes (Death)
  Sender: FDA-Public Use
  Company Number: IN-ROCHE-3250373

PATIENT
  Age: 67 Year
  Sex: Male

DRUGS (8)
  1. TECENTRIQ [Suspect]
     Active Substance: ATEZOLIZUMAB
     Indication: Hepatocellular carcinoma
     Route: 042
     Dates: start: 20221202
  2. TAXIM O [Concomitant]
  3. LENVATINIB [Concomitant]
     Active Substance: LENVATINIB
  4. THALIDOMIDE [Concomitant]
     Active Substance: THALIDOMIDE
  5. CARDIVAS (INDIA) [Concomitant]
  6. RAPITUS [Concomitant]
  7. LACTIHEP SYRUP [Concomitant]
  8. ALBUMIN HUMAN [Concomitant]
     Active Substance: ALBUMIN HUMAN
     Route: 042

REACTIONS (2)
  - Off label use [Unknown]
  - Death [Fatal]

NARRATIVE: CASE EVENT DATE: 20230402
